FAERS Safety Report 4730772-8 (Version None)
Quarter: 2005Q3

REPORT INFORMATION
  Report Type: 
  Country: None (occurrence: None)
  Receive Date: 20050725
  Receipt Date: 20050516
  Transmission Date: 20060218
  Serious: No
  Sender: FDA-Public Use
  Company Number: USA050598244

PATIENT
  Age: 12 Year
  Sex: Male

DRUGS (1)
  1. STRATTERA [Suspect]
     Indication: ATTENTION DEFICIT/HYPERACTIVITY DISORDER
     Dosage: 60 MG/1 DAY
     Dates: start: 20050411, end: 20050501

REACTIONS (5)
  - ANXIETY [None]
  - CONSTIPATION [None]
  - NERVOUSNESS [None]
  - PANIC ATTACK [None]
  - TRICHOTILLOMANIA [None]
